FAERS Safety Report 8025847 (Version 4)
Quarter: 2013Q2

REPORT INFORMATION
  Report Type: Spontaneous
  Country: JP (occurrence: JP)
  Receive Date: 20110708
  Receipt Date: 20130402
  Transmission Date: 20140414
  Serious: Yes (Death, Life-Threatening, Hospitalization, Other)
  Sender: FDA-Public Use
  Company Number: JP-JNJFOC-20110701564

PATIENT
  Age: 56 Year
  Sex: Female
  Weight: 51 kg

DRUGS (19)
  1. INVEGA [Suspect]
     Indication: DELUSION
     Route: 048
     Dates: start: 20110314, end: 20110416
  2. INVEGA [Suspect]
     Indication: DELUSION
     Route: 048
     Dates: start: 20110224, end: 20110313
  3. INVEGA [Suspect]
     Indication: HALLUCINATION, AUDITORY
     Route: 048
     Dates: start: 20110224, end: 20110313
  4. INVEGA [Suspect]
     Indication: HALLUCINATION, AUDITORY
     Route: 048
     Dates: start: 20110314, end: 20110416
  5. RISPERAL CONSTA [Suspect]
     Indication: PRODUCT USED FOR UNKNOWN INDICATION
     Route: 030
     Dates: start: 20090608, end: 20110329
  6. RISPERDAL [Suspect]
     Indication: PRODUCT USED FOR UNKNOWN INDICATION
     Route: 048
     Dates: start: 20110416
  7. RISPERDAL [Suspect]
     Indication: PRODUCT USED FOR UNKNOWN INDICATION
     Route: 048
     Dates: start: 201102, end: 20110314
  8. RISPERDAL [Suspect]
     Indication: PRODUCT USED FOR UNKNOWN INDICATION
     Route: 048
     Dates: start: 20071102, end: 201102
  9. CONTOMIN [Suspect]
     Indication: PRODUCT USED FOR UNKNOWN INDICATION
     Route: 048
     Dates: start: 20110218, end: 20110416
  10. CONTOMIN [Suspect]
     Indication: PRODUCT USED FOR UNKNOWN INDICATION
     Route: 048
  11. VOGLIBOSE [Suspect]
     Indication: PRODUCT USED FOR UNKNOWN INDICATION
     Route: 048
     Dates: start: 200212, end: 20110416
  12. DAONIL [Suspect]
     Indication: PRODUCT USED FOR UNKNOWN INDICATION
     Route: 048
     Dates: start: 200212, end: 20110416
  13. RISPERIDONE [Suspect]
     Indication: PRODUCT USED FOR UNKNOWN INDICATION
     Route: 065
     Dates: start: 20110416
  14. SEPAZON [Concomitant]
     Route: 048
     Dates: start: 20100924, end: 20110416
  15. EURODIN (ESTAZOLAM) [Concomitant]
     Route: 048
     Dates: start: 20101220, end: 20110416
  16. ATARAX-P [Concomitant]
     Route: 048
     Dates: start: 20110131, end: 20110416
  17. RHYTHMY [Concomitant]
     Route: 048
     Dates: start: 20110207, end: 20110416
  18. GASMOTIN [Concomitant]
     Indication: PRODUCT USED FOR UNKNOWN INDICATION
     Route: 048
     Dates: start: 20021227, end: 20110416
  19. YODEL [Concomitant]
     Indication: PRODUCT USED FOR UNKNOWN INDICATION
     Route: 048
     Dates: start: 20021227, end: 20110416

REACTIONS (7)
  - Enterocolitis infectious [Fatal]
  - Septic shock [Fatal]
  - Nerve block [Not Recovered/Not Resolved]
  - Parkinsonism [Not Recovered/Not Resolved]
  - Neuroleptic malignant syndrome [Not Recovered/Not Resolved]
  - Hypoglycaemic coma [Not Recovered/Not Resolved]
  - Urinary tract infection [Not Recovered/Not Resolved]
